FAERS Safety Report 4476701-6 (Version None)
Quarter: 2004Q4

REPORT INFORMATION
  Report Type: 
  Country: None (occurrence: None)
  Receive Date: 20041013
  Receipt Date: 20041001
  Transmission Date: 20050328
  Serious: Yes (Other)
  Sender: FDA-Public Use
  Company Number: 163-20785-04100114

PATIENT
  Sex: 0

DRUGS (2)
  1. THALOMID [Suspect]
     Indication: GLIOBLASTOMA MULTIFORME
     Dosage: 200MG QD W/TITRATION OF 100-200MG/D Q 1-2 WKS TO A MAX OF 1200MG, QD, ORAL
     Route: 048
  2. RADIATION THERAPY [Suspect]
     Indication: GLIOBLASTOMA MULTIFORME
     Dosage: TOTAL DOSE 60GY OVER 6 WKS, UNKNOWN

REACTIONS (20)
  - AMNESIA [None]
  - APHASIA [None]
  - ATAXIA [None]
  - DYSPHASIA [None]
  - DYSPNOEA [None]
  - EMBOLISM [None]
  - FATIGUE [None]
  - HEADACHE [None]
  - HYPERGLYCAEMIA [None]
  - HYPOTENSION [None]
  - INFECTION [None]
  - LUNG INFILTRATION [None]
  - OEDEMA [None]
  - PERIPHERAL MOTOR NEUROPATHY [None]
  - PERIPHERAL SENSORY NEUROPATHY [None]
  - PNEUMONITIS [None]
  - RECALL PHENOMENON [None]
  - SPEECH DISORDER [None]
  - THROMBOSIS [None]
  - TREMOR [None]
